FAERS Safety Report 19408206 (Version 1)
Quarter: 2021Q2

REPORT INFORMATION
  Report Type: Report from Study
  Country: US (occurrence: US)
  Receive Date: 20210611
  Receipt Date: 20210611
  Transmission Date: 20210717
  Serious: Yes (Death, Other)
  Sender: FDA-Public Use
  Company Number: US-PFIZER INC-2021670608

PATIENT

DRUGS (1)
  1. BINIMETINIB [Suspect]
     Active Substance: BINIMETINIB
     Indication: NEOPLASM PROGRESSION
     Dosage: 45 MG, 2X/DAY (CONTINUOUSLY)
     Route: 048

REACTIONS (1)
  - Multiple organ dysfunction syndrome [Fatal]
